FAERS Safety Report 15490435 (Version 2)
Quarter: 2018Q4

REPORT INFORMATION
  Report Type: Spontaneous
  Country: SG (occurrence: SG)
  Receive Date: 20181011
  Receipt Date: 20181011
  Transmission Date: 20190205
  Serious: Yes (Disabling, Other)
  Sender: FDA-Public Use
  Company Number: PHHY2018SG117370

PATIENT
  Age: 32 Year
  Sex: Male

DRUGS (1)
  1. PREDNISOLONE. [Suspect]
     Active Substance: PREDNISOLONE
     Indication: OPTIC NEURITIS
     Route: 048

REACTIONS (10)
  - Eye pain [Unknown]
  - Necrotising retinitis [Unknown]
  - Papilloedema [Unknown]
  - Blindness [Unknown]
  - Headache [Unknown]
  - Retinitis [Unknown]
  - Vasculitis [Unknown]
  - Retinal infiltrates [Unknown]
  - Vitritis [Unknown]
  - Vision blurred [Unknown]
